FAERS Safety Report 22240104 (Version 2)
Quarter: 2023Q2

REPORT INFORMATION
  Report Type: Spontaneous
  Country: US (occurrence: US)
  Receive Date: 20230421
  Receipt Date: 20230607
  Transmission Date: 20230722
  Serious: Yes (Death)
  Sender: FDA-Public Use
  Company Number: US-PFIZER INC-PV202300071794

PATIENT
  Age: 68 Year
  Sex: Female

DRUGS (1)
  1. RETACRIT [Suspect]
     Active Substance: EPOETIN ALFA-EPBX
     Dosage: 4000 IU/ML, (DIRECTIONS: INJECT ONCE EVERY 14 DAYS) QTY: 2]

REACTIONS (2)
  - Death [Fatal]
  - Off label use [Unknown]
